FAERS Safety Report 5337434-7 (Version None)
Quarter: 2007Q2

REPORT INFORMATION
  Report Type: 
  Country: None (occurrence: None)
  Receive Date: 20070309
  Receipt Date: 20060925
  Transmission Date: 20071010
  Serious: Yes (Other)
  Sender: FDA-Public Use
  Company Number: US200608004481

PATIENT
  Age: 62 Year
  Sex: Female
  Weight: 55.3 kg

DRUGS (15)
  1. GEMZAR [Suspect]
     Indication: NON-SMALL CELL LUNG CANCER STAGE IV
     Dosage: 1000 MG/M2, OTHER, INTRAVENOUS
     Route: 042
     Dates: start: 20060807
  2. GEMZAR [Suspect]
  3. CARBOPLATIN [Concomitant]
  4. PREDNISONE TAB [Concomitant]
  5. PREVACID [Concomitant]
  6. PROCHLORPERAZINE MALEATE [Concomitant]
  7. TRAMADOL HCL [Concomitant]
  8. PERSANTINE [Concomitant]
  9. PREGABALIN (PREGABALIN [Concomitant]
  10. TYLENOL W/ CODEINE NO. 3 [Concomitant]
  11. ALBUTEROL SULFATE [Concomitant]
  12. DEPAKOTE [Concomitant]
  13. FELODIPINE [Concomitant]
  14. DEXAMETHASONE TAB [Concomitant]
  15. FOLIC ACID [Concomitant]

REACTIONS (5)
  - HAEMATOCRIT DECREASED [None]
  - HAEMOGLOBIN DECREASED [None]
  - PLATELET COUNT DECREASED [None]
  - RED BLOOD CELL COUNT DECREASED [None]
  - WHITE BLOOD CELL COUNT DECREASED [None]
